FAERS Safety Report 21626725 (Version 1)
Quarter: 2022Q4

REPORT INFORMATION
  Report Type: Report from Study
  Country: US (occurrence: US)
  Receive Date: 20221122
  Receipt Date: 20221122
  Transmission Date: 20230113
  Serious: No
  Sender: FDA-Public Use
  Company Number: US-ABBVIE-22K-163-4477942-00

PATIENT
  Sex: Male

DRUGS (3)
  1. SKYRIZI [Suspect]
     Active Substance: RISANKIZUMAB-RZAA
     Indication: Psoriasis
     Dosage: 150 MG PEN ON WEEK 0, WEEK 4 AND THEN EVERY 12 WEEKS THEREAFTER
     Route: 058
     Dates: start: 2022
  2. SKYRIZI [Suspect]
     Active Substance: RISANKIZUMAB-RZAA
     Indication: Psoriatic arthropathy
     Route: 058
     Dates: start: 20220512
  3. SKYRIZI [Suspect]
     Active Substance: RISANKIZUMAB-RZAA
     Route: 058
     Dates: start: 2022

REACTIONS (9)
  - Chills [Unknown]
  - Hyperhidrosis [Unknown]
  - Gout [Unknown]
  - Fatigue [Unknown]
  - Mood swings [Unknown]
  - Psoriasis [Recovering/Resolving]
  - Headache [Unknown]
  - Pruritus [Unknown]
  - Peripheral coldness [Unknown]

NARRATIVE: CASE EVENT DATE: 20220101
